FAERS Safety Report 5314378-8 (Version None)
Quarter: 2007Q2

REPORT INFORMATION
  Report Type: 
  Country: None (occurrence: None)
  Receive Date: 20070502
  Receipt Date: 20070423
  Transmission Date: 20071010
  Serious: Yes (Other)
  Sender: FDA-Public Use
  Company Number: PHHO2007AR07294

PATIENT
  Age: 68 Year
  Sex: Female

DRUGS (1)
  1. ZELMAC / HTF 919A [Suspect]
     Indication: IRRITABLE BOWEL SYNDROME
     Dosage: UP TO 3 TABLETS DAILY
     Route: 048

REACTIONS (2)
  - POLYP [None]
  - POLYPECTOMY [None]
